FAERS Safety Report 4610098-3 (Version None)
Quarter: 2005Q1

REPORT INFORMATION
  Report Type: 
  Country: None (occurrence: None)
  Receive Date: 20050316
  Receipt Date: 20050304
  Transmission Date: 20050727
  Serious: Yes (Death, Hospitalization)
  Sender: FDA-Public Use
  Company Number: US-JNJFOC-20050302203

PATIENT
  Age: 77 Year
  Sex: Female

DRUGS (4)
  1. REMINYL [Suspect]
     Route: 049
  2. NAMENDA [Concomitant]
     Route: 049
  3. VIOXX [Concomitant]
     Route: 049
  4. EVISTA [Concomitant]
     Indication: HORMONE REPLACEMENT THERAPY

REACTIONS (2)
  - CEREBRAL HAEMORRHAGE [None]
  - FALL [None]
